FAERS Safety Report 11213999 (Version 2)
Quarter: 2016Q4

REPORT INFORMATION
  Report Type: Report from Study
  Country: US (occurrence: US)
  Receive Date: 20150623
  Receipt Date: 20161207
  Transmission Date: 20170206
  Serious: Yes (Hospitalization, Other)
  Sender: FDA-Public Use
  Company Number: US-TAKEDA-2015TUS007975

PATIENT
  Age: 20 Year
  Sex: Female
  Weight: 47.62 kg

DRUGS (8)
  1. PREDNISONE. [Concomitant]
     Active Substance: PREDNISONE
     Indication: CROHN^S DISEASE
     Dosage: UNK MG, QD
     Route: 065
     Dates: start: 2000
  2. SUBOXCIN [Concomitant]
     Indication: ABDOMINAL PAIN
     Dosage: 12 MG, UNK
     Route: 060
  3. NEXPLANON BIRTH CONTROL IMPLANTED [Concomitant]
     Dosage: UNK
  4. VITAMIN B12 [Concomitant]
     Active Substance: CYANOCOBALAMIN
     Indication: ANAEMIA
     Dosage: 1 MG, MONTHLY
     Route: 050
     Dates: start: 201406
  5. VEDOLIZUMAB [Suspect]
     Active Substance: VEDOLIZUMAB
     Indication: CROHN^S DISEASE
     Dosage: 300 MG, UNK
     Route: 042
     Dates: start: 201406
  6. MAGNOTRYPALINE [Concomitant]
     Indication: INSOMNIA
     Dosage: 10 MG, UNK
     Route: 048
     Dates: start: 201503
  7. VITAMIN B12 [Concomitant]
     Active Substance: CYANOCOBALAMIN
     Indication: ENERGY INCREASED
  8. MAGNOTRYPALINE [Concomitant]
     Indication: ABDOMINAL PAIN

REACTIONS (13)
  - Inflammation [Not Recovered/Not Resolved]
  - Haematochezia [Not Recovered/Not Resolved]
  - Abdominal pain [Not Recovered/Not Resolved]
  - Large intestinal ulcer [Not Recovered/Not Resolved]
  - Vomiting [Not Recovered/Not Resolved]
  - Kidney infection [Not Recovered/Not Resolved]
  - Urinary tract infection [Not Recovered/Not Resolved]
  - Crohn^s disease [Not Recovered/Not Resolved]
  - Pregnancy [Unknown]
  - Duodenal ulcer [Not Recovered/Not Resolved]
  - Renal haemorrhage [Not Recovered/Not Resolved]
  - Oedematous kidney [Not Recovered/Not Resolved]
  - Renal pain [Not Recovered/Not Resolved]

NARRATIVE: CASE EVENT DATE: 201505
